FAERS Safety Report 9563242 (Version 1)
Quarter: 2013Q3

REPORT INFORMATION
  Report Type: Spontaneous
  Country: US (occurrence: US)
  Receive Date: 20130927
  Receipt Date: 20130927
  Transmission Date: 20140515
  Serious: No
  Sender: FDA-Public Use
  Company Number: US-TEVA-435133USA

PATIENT
  Age: 23 Year
  Sex: Female
  Weight: 48.12 kg

DRUGS (1)
  1. PLAN B ONE-STEP [Suspect]
     Indication: POST COITAL CONTRACEPTION
     Dosage: 1.5 MILLIGRAM DAILY;
     Route: 048
     Dates: start: 20130906, end: 20130906

REACTIONS (3)
  - Back pain [Recovered/Resolved]
  - Migraine [Recovered/Resolved]
  - Menstruation irregular [Not Recovered/Not Resolved]
